FAERS Safety Report 23416306 (Version 1)
Quarter: 2024Q1

REPORT INFORMATION
  Report Type: Spontaneous
  Country: None (occurrence: US)
  Receive Date: 20240118
  Receipt Date: 20240118
  Transmission Date: 20240410
  Serious: Yes (Other)
  Sender: FDA-Public Use
  Company Number: US-The Proactiv LLC-2151461

PATIENT
  Age: 70 Year
  Sex: Male

DRUGS (3)
  1. PROACTIV SKIN PURIFYING MASK [Suspect]
     Active Substance: SULFUR
     Route: 061
  2. COSMETICS [Suspect]
     Active Substance: COSMETICS
     Route: 061
  3. PROACTIV MD ADAPALENE ACNE TREATMENT [Concomitant]
     Active Substance: ADAPALENE
     Route: 061

REACTIONS (1)
  - Leukaemia [Unknown]
